FAERS Safety Report 6955797-3 (Version None)
Quarter: 2010Q3

REPORT INFORMATION
  Report Type: 
  Country: None (occurrence: None)
  Receive Date: 20100830
  Receipt Date: 20100618
  Transmission Date: 20110219
  Serious: No
  Sender: FDA-Public Use
  Company Number: US-AMGEN-KDL419324

PATIENT
  Sex: Male

DRUGS (4)
  1. NPLATE [Suspect]
     Indication: IDIOPATHIC THROMBOCYTOPENIC PURPURA
  2. CARDURA [Concomitant]
  3. ACCUPRIL [Concomitant]
  4. FEXOFENADINE HCL [Concomitant]

REACTIONS (2)
  - HYPERHIDROSIS [None]
  - TEMPERATURE INTOLERANCE [None]
